FAERS Safety Report 20391405 (Version 1)
Quarter: 2022Q1

REPORT INFORMATION
  Report Type: Spontaneous
  Country: US (occurrence: None)
  Receive Date: 20220128
  Receipt Date: 20220128
  Transmission Date: 20220424
  Serious: Yes (Hospitalization)
  Sender: FDA-Public Use
  Company Number: None

PATIENT
  Sex: Female
  Weight: 54 kg

DRUGS (1)
  1. RITUXIMAB [Suspect]
     Active Substance: RITUXIMAB
     Dates: end: 20211014

REACTIONS (18)
  - Febrile neutropenia [None]
  - Disorientation [None]
  - Confusional state [None]
  - Pneumonia [None]
  - Blood pressure increased [None]
  - White blood cell count decreased [None]
  - Blood potassium decreased [None]
  - Procalcitonin increased [None]
  - Septic shock [None]
  - Subarachnoid haemorrhage [None]
  - Thrombocytopenia [None]
  - Aspiration [None]
  - Malnutrition [None]
  - Infection [None]
  - Organising pneumonia [None]
  - Pulmonary mass [None]
  - Candida infection [None]
  - Thyroid disorder [None]

NARRATIVE: CASE EVENT DATE: 20220105
